FAERS Safety Report 24652999 (Version 2)
Quarter: 2024Q4

REPORT INFORMATION
  Report Type: Report from Study
  Country: US (occurrence: US)
  Receive Date: 20241122
  Receipt Date: 20241210
  Transmission Date: 20250115
  Serious: Yes (Death, Other)
  Sender: ABBVIE
  Company Number: US-ABBVIE-6015426

PATIENT
  Age: 71 Year
  Sex: Male
  Weight: 80.739 kg

DRUGS (1)
  1. HUMIRA [Suspect]
     Active Substance: ADALIMUMAB
     Indication: Colitis ulcerative
     Dosage: CITRATE FREE?FORM STRENGTH:  40 MG
     Route: 058
     Dates: start: 20220518

REACTIONS (1)
  - Chronic obstructive pulmonary disease [Fatal]
